FAERS Safety Report 6021297-0 (Version None)
Quarter: 2008Q4

REPORT INFORMATION
  Report Type: 
  Country: None (occurrence: None)
  Receive Date: 20081223
  Receipt Date: 20081016
  Transmission Date: 20090506
  Serious: Yes (Other)
  Sender: FDA-Public Use
  Company Number: 2008100038

PATIENT
  Age: 37 Year
  Sex: Female
  Weight: 86.1834 kg

DRUGS (1)
  1. ASTELIN [Suspect]
     Indication: POSTNASAL DRIP
     Dosage: 1096 MCG (548 MCG, 2 IN 1 D) IN
     Route: 045
     Dates: start: 20040101, end: 20081001

REACTIONS (1)
  - TACHYCARDIA [None]
